FAERS Safety Report 6510115-X (Version None)
Quarter: 2009Q4

REPORT INFORMATION
  Report Type: 
  Country: None (occurrence: None)
  Receive Date: 20091222
  Receipt Date: 20091218
  Transmission Date: 20100525
  Serious: Yes (Hospitalization)
  Sender: FDA-Public Use
  Company Number: A0835078A

PATIENT
  Sex: Female
  Weight: 57.5 kg

DRUGS (2)
  1. ELTROMBOPAG [Suspect]
     Dosage: 50MG VARIABLE DOSE
     Route: 048
     Dates: start: 20061103
  2. ATENOLOL [Concomitant]
     Indication: HYPERTENSION

REACTIONS (2)
  - CHEST PAIN [None]
  - DISCOMFORT [None]
